FAERS Safety Report 10960036 (Version 1)
Quarter: 2015Q1

REPORT INFORMATION
  Report Type: Spontaneous
  Country: US (occurrence: None)
  Receive Date: 20150326
  Receipt Date: 20150326
  Transmission Date: 20150721
  Serious: No
  Sender: FDA-Public Use
  Company Number: None

PATIENT
  Age: 41 Year
  Sex: Female
  Weight: 95.6 kg

DRUGS (1)
  1. TAXOL [Suspect]
     Active Substance: PACLITAXEL
     Dosage: SEVERE TAXOL REACTION, DRUG STOPPED AND NOT TO BE RECHALLENGED
     Dates: end: 20150323

REACTIONS (6)
  - Chills [None]
  - Urinary incontinence [None]
  - Asthenia [None]
  - Hyperhidrosis [None]
  - Fatigue [None]
  - Unresponsive to stimuli [None]

NARRATIVE: CASE EVENT DATE: 20150324
